FAERS Safety Report 22606824 (Version 1)
Quarter: 2023Q2

REPORT INFORMATION
  Report Type: Report from Study
  Country: IT (occurrence: IT)
  Receive Date: 20230615
  Receipt Date: 20230615
  Transmission Date: 20230721
  Serious: Yes (Other)
  Sender: FDA-Public Use
  Company Number: IT-ViiV Healthcare Limited-IT2023GSK080861

PATIENT

DRUGS (8)
  1. DOLUTEGRAVIR [Suspect]
     Active Substance: DOLUTEGRAVIR
     Indication: HIV infection
     Dosage: UNK
  2. LAMIVUDINE [Suspect]
     Active Substance: LAMIVUDINE
     Indication: HIV infection
     Dosage: UNK
  3. ABACAVIR [Suspect]
     Active Substance: ABACAVIR
     Indication: HIV infection
     Dosage: UNK
  4. ELVITEGRAVIR [Suspect]
     Active Substance: ELVITEGRAVIR
     Indication: HIV infection
     Dosage: UNK
  5. RITONAVIR [Concomitant]
     Active Substance: RITONAVIR
     Indication: HIV infection
  6. DARUNAVIR [Concomitant]
     Active Substance: DARUNAVIR
     Indication: HIV infection
     Dosage: UNK
  7. LOPINAVIR [Concomitant]
     Active Substance: LOPINAVIR
     Indication: HIV infection
  8. MARAVIROC [Concomitant]
     Active Substance: MARAVIROC
     Indication: HIV infection

REACTIONS (4)
  - Virologic failure [Unknown]
  - Pathogen resistance [Unknown]
  - Viral mutation identified [Unknown]
  - Treatment failure [Unknown]
